FAERS Safety Report 24939038 (Version 1)
Quarter: 2025Q1

REPORT INFORMATION
  Report Type: Spontaneous
  Country: US (occurrence: US)
  Receive Date: 20250206
  Receipt Date: 20250206
  Transmission Date: 20250408
  Serious: Yes (Hospitalization, Other)
  Sender: ASTELLAS
  Company Number: US-GILEAD-2025-0701899

PATIENT
  Age: 54 Year
  Sex: Male

DRUGS (12)
  1. TACROLIMUS [Suspect]
     Active Substance: TACROLIMUS
     Indication: Heart transplant
     Route: 065
  2. TACROLIMUS [Suspect]
     Active Substance: TACROLIMUS
     Route: 065
  3. AMBISOME [Suspect]
     Active Substance: AMPHOTERICIN B
     Indication: Fusarium infection
     Dosage: 650 MG IV DAILY
     Route: 042
  4. AMBISOME [Suspect]
     Active Substance: AMPHOTERICIN B
     Indication: Mediastinitis
     Route: 065
  5. VORICONAZOLE [Concomitant]
     Active Substance: VORICONAZOLE
     Indication: Product used for unknown indication
     Dosage: 350 MG IV TWICE DAILY
     Route: 042
  6. VORICONAZOLE [Concomitant]
     Active Substance: VORICONAZOLE
     Dosage: 500 MG EVERY 12 H TWICE
     Route: 042
  7. MYCOPHENOLIC ACID [Concomitant]
     Active Substance: MYCOPHENOLIC ACID
     Indication: Heart transplant
     Route: 048
  8. MYCOPHENOLIC ACID [Concomitant]
     Active Substance: MYCOPHENOLIC ACID
     Route: 065
  9. METHYLPREDNISOLONE [Concomitant]
     Active Substance: METHYLPREDNISOLONE
     Indication: Heart transplant
     Route: 065
  10. NYSTATIN [Concomitant]
     Active Substance: NYSTATIN
     Indication: Product used for unknown indication
     Route: 065
  11. FLUCONAZOLE [Concomitant]
     Active Substance: FLUCONAZOLE
     Indication: Product used for unknown indication
     Route: 042
  12. MICAFUNGIN [Concomitant]
     Active Substance: MICAFUNGIN SODIUM
     Indication: Leukocytosis
     Route: 042

REACTIONS (12)
  - Acute kidney injury [Not Recovered/Not Resolved]
  - Chronic kidney disease [Not Recovered/Not Resolved]
  - Staphylococcal mediastinitis [Recovered/Resolved]
  - Wound infection staphylococcal [Recovered/Resolved]
  - Staphylococcal bacteraemia [Recovered/Resolved]
  - Fusarium infection [Recovered/Resolved]
  - Pericarditis fungal [Recovered/Resolved]
  - Osteomyelitis fungal [Recovered/Resolved]
  - Fungal infection [Recovered/Resolved]
  - Mediastinitis [Recovered/Resolved]
  - Infection [Unknown]
  - Product use issue [Recovered/Resolved]
